FAERS Safety Report 14591370 (Version 2)
Quarter: 2018Q2

REPORT INFORMATION
  Report Type: Spontaneous
  Country: BE (occurrence: BE)
  Receive Date: 20180302
  Receipt Date: 20180607
  Transmission Date: 20180711
  Serious: Yes (Death, Hospitalization)
  Sender: FDA-Public Use
  Company Number: BE-PFIZER INC-2018087599

PATIENT
  Age: 81 Year
  Sex: Female

DRUGS (12)
  1. LASIX [Interacting]
     Active Substance: FUROSEMIDE
     Dosage: 80 MG, 1X/DAY (CHRONIC TREATMENT)
     Route: 048
  2. ALLOPURINOL. [Concomitant]
     Active Substance: ALLOPURINOL
     Dosage: 100 MG, 1X/DAY (CHRONIC TREATMENT)
     Route: 048
  3. TENORMIN [Concomitant]
     Active Substance: ATENOLOL
     Dosage: 32.5 MG, 1X/DAY (CHRONIC TREATMENT (0.5 TABLET IN THE MORNING, 1 TABLET IN THE EVENING))
     Route: 048
  4. SERTRALINE HCL [Interacting]
     Active Substance: SERTRALINE HYDROCHLORIDE
     Indication: DEPRESSION
     Dosage: 50 MG, 1X/DAY (CHRONIC TREATMENT : DEGRESSIVE DOSE TO BE REPLACED BY MIRTAZAPINE)
     Route: 048
  5. MOXONIDINE [Concomitant]
     Active Substance: MOXONIDINE
     Dosage: CHRONIC TREATMENT
     Route: 048
  6. ERYTHROFORTE [Interacting]
     Active Substance: ERYTHROMYCIN ETHYLSUCCINATE
     Dosage: 1500 MG, DAILY
     Route: 048
     Dates: start: 20180102, end: 20180109
  7. MIRTAZAPINE. [Interacting]
     Active Substance: MIRTAZAPINE
     Indication: DEPRESSION
     Dosage: 15 MG, 1X/DAY (I DON^T KNOW IF THE TREATMENT ALREADY WAS STARTED WHEN THE ADVERSE EFFECTS APPEARED)
     Route: 048
  8. CORDARONE [Suspect]
     Active Substance: AMIODARONE HYDROCHLORIDE
     Dosage: 100 MG, DAILY (CHRONIC TREATMENT)
     Route: 048
  9. OMEPRAZOL [Interacting]
     Active Substance: OMEPRAZOLE
     Dosage: 40 MG, 1X/DAY (CHRONIC TREATMENT)
     Route: 048
  10. HYDRALAZINE [Concomitant]
     Active Substance: HYDRALAZINE HYDROCHLORIDE
     Dosage: 75 MG, 1X/DAY (CHRONIC TREATMENT)
     Route: 048
  11. MIRTAZAPINE. [Interacting]
     Active Substance: MIRTAZAPINE
     Indication: INSOMNIA
  12. ASAFLOW [Concomitant]
     Active Substance: ASPIRIN
     Dosage: 80 MG, 1X/DAY (CHRONIC TREATMENT)
     Route: 048

REACTIONS (2)
  - Drug interaction [Fatal]
  - Electrocardiogram QT prolonged [Fatal]

NARRATIVE: CASE EVENT DATE: 20180122
